FAERS Safety Report 23643502 (Version 4)
Quarter: 2024Q2

REPORT INFORMATION
  Report Type: Report from Study
  Country: US (occurrence: US)
  Receive Date: 20240318
  Receipt Date: 20240419
  Transmission Date: 20240716
  Serious: No
  Sender: FDA-Public Use
  Company Number: US-AstraZeneca-CH-00587165A

PATIENT
  Age: 57 Year
  Sex: Male

DRUGS (2)
  1. STRENSIQ [Suspect]
     Active Substance: ASFOTASE ALFA
     Indication: Hypophosphatasia
     Dosage: 228 MILLIGRAM, TIW
     Route: 058
     Dates: start: 20240213
  2. ENBREL [Suspect]
     Active Substance: ETANERCEPT
     Indication: Product used for unknown indication
     Dosage: UNK
     Route: 065

REACTIONS (8)
  - Injection site bruising [Recovering/Resolving]
  - Injection site rash [Recovering/Resolving]
  - Injection site erythema [Not Recovered/Not Resolved]
  - Injection site urticaria [Recovering/Resolving]
  - Injection site irritation [Not Recovered/Not Resolved]
  - Injection site pruritus [Recovering/Resolving]
  - Injection site reaction [Unknown]
  - Injection site swelling [Not Recovered/Not Resolved]

NARRATIVE: CASE EVENT DATE: 20240307
